FAERS Safety Report 23617811 (Version 4)
Quarter: 2024Q3

REPORT INFORMATION
  Report Type: Spontaneous
  Country: US (occurrence: US)
  Receive Date: 20240311
  Receipt Date: 20240816
  Transmission Date: 20241016
  Serious: No
  Sender: SANOFI AVENTIS
  Company Number: US-SA-SAC20240308000545

PATIENT
  Age: 13 Year
  Sex: Female

DRUGS (2)
  1. DUPIXENT [Suspect]
     Active Substance: DUPILUMAB
     Indication: Type V hyperlipidaemia
     Dosage: 400 MG, 1X
     Route: 058
     Dates: start: 20231211, end: 20231211
  2. DUPIXENT [Suspect]
     Active Substance: DUPILUMAB
     Indication: Dermatitis atopic
     Dosage: 200 MG, QOW
     Route: 058
     Dates: start: 202312, end: 202405

REACTIONS (6)
  - Injection site discolouration [Unknown]
  - Urticaria [Recovered/Resolved]
  - Injection site swelling [Unknown]
  - Rash erythematous [Unknown]
  - Product use in unapproved indication [Unknown]
  - Arthralgia [Recovered/Resolved]

NARRATIVE: CASE EVENT DATE: 20231211
